FAERS Safety Report 18356003 (Version 1)
Quarter: 2020Q4

REPORT INFORMATION
  Report Type: Spontaneous
  Country: US (occurrence: US)
  Receive Date: 20201007
  Receipt Date: 20201007
  Transmission Date: 20210114
  Serious: Yes (Death, Hospitalization, Other)
  Sender: FDA-Public Use
  Company Number: US-PURDUE-USA-2020-0168983

PATIENT
  Age: 26 Year
  Sex: Female

DRUGS (3)
  1. OXYCODONE HYDROCHLORIDE (SIMILAR TO NDA 22-272) [Suspect]
     Active Substance: OXYCODONE HYDROCHLORIDE
     Indication: ACCIDENT
     Dosage: 30 MG, UNK
     Route: 048
     Dates: start: 2006
  2. METHADONE [Suspect]
     Active Substance: METHADONE HYDROCHLORIDE
     Indication: ACCIDENT
     Dosage: 10 MG, UNK
     Route: 065
     Dates: start: 2006
  3. ALPRAZOLAM. [Concomitant]
     Active Substance: ALPRAZOLAM
     Indication: PRODUCT USED FOR UNKNOWN INDICATION
     Dosage: 2 MG, UNK
     Route: 065

REACTIONS (19)
  - Surgery [Unknown]
  - Drug withdrawal syndrome [Unknown]
  - Immunodeficiency [Unknown]
  - Suicidal ideation [Unknown]
  - Lung lobectomy [Unknown]
  - Self esteem decreased [Unknown]
  - Death [Fatal]
  - Cardiac pacemaker insertion [Unknown]
  - Lung disorder [Unknown]
  - Cardiac valve disease [Unknown]
  - Somnolence [Unknown]
  - Unevaluable event [Unknown]
  - Drug dependence [Unknown]
  - Depression [Unknown]
  - Behaviour disorder [Unknown]
  - Heart valve replacement [Unknown]
  - Affective disorder [Unknown]
  - Substance abuse [Unknown]
  - Mood swings [Unknown]

NARRATIVE: CASE EVENT DATE: 20180305
